FAERS Safety Report 6372190-5 (Version None)
Quarter: 2009Q3

REPORT INFORMATION
  Report Type: 
  Country: None (occurrence: None)
  Receive Date: 20090924
  Receipt Date: 20090922
  Transmission Date: 20100115
  Serious: Yes (Hospitalization)
  Sender: FDA-Public Use
  Company Number: US-ABBOTT-09P-163-0596845-00

PATIENT
  Sex: Female

DRUGS (6)
  1. HUMIRA [Suspect]
     Indication: PSORIASIS
     Dosage: UNKNOWN
     Dates: start: 20081016
  2. ZOLOFT [Concomitant]
     Indication: DRUG USE FOR UNKNOWN INDICATION
  3. BETAMETHASONE CREAM [Concomitant]
     Indication: PSORIASIS
     Dosage: UNKNOWN
  4. TACLONEL [Concomitant]
     Indication: PSORIASIS
     Dosage: UNKNOWN
  5. CLOBETASOL PROPIONATE [Concomitant]
     Indication: PSORIASIS
     Dosage: UNKNOWN
  6. OLUX FOAM [Concomitant]
     Indication: PSORIASIS
     Dosage: UNKNOWN

REACTIONS (2)
  - GROIN ABSCESS [None]
  - STAPHYLOCOCCAL INFECTION [None]
